FAERS Safety Report 6073317-5 (Version None)
Quarter: 2009Q1

REPORT INFORMATION
  Report Type: 
  Country: None (occurrence: None)
  Receive Date: 20090211
  Receipt Date: 20090130
  Transmission Date: 20090719
  Serious: Yes (Hospitalization, Other)
  Sender: FDA-Public Use
  Company Number: US-ROCHE-552213

PATIENT
  Sex: Female
  Weight: 99.8 kg

DRUGS (4)
  1. ACCUTANE [Suspect]
     Indication: ACNE
     Dosage: THE PATIENT WAS PRESCRIBED ISOTRETINOIN 40 MG AT A  DOSE OF 40/80
     Route: 065
     Dates: start: 20020103, end: 20020203
  2. ACCUTANE [Suspect]
     Route: 065
     Dates: start: 20020204, end: 20020512
  3. ACCUTANE [Suspect]
     Dosage: PATIENT TOOK 40 MG 2 EVEN DAYS AND 1 ODD DAYS.
     Route: 065
     Dates: start: 20030227, end: 20030702
  4. ORTHO TRI-CYCLEN [Concomitant]
     Indication: CONTRACEPTION
     Route: 065
     Dates: start: 20020103

REACTIONS (17)
  - ARTHRALGIA [None]
  - BACK PAIN [None]
  - CHOLELITHIASIS [None]
  - CROHN'S DISEASE [None]
  - DEPRESSION [None]
  - DERMATITIS [None]
  - DRY EYE [None]
  - DRY SKIN [None]
  - HAEMATURIA [None]
  - HEADACHE [None]
  - INFECTIOUS MONONUCLEOSIS [None]
  - INFLAMMATORY BOWEL DISEASE [None]
  - IRRITABLE BOWEL SYNDROME [None]
  - LIP DRY [None]
  - SELF INJURIOUS BEHAVIOUR [None]
  - SUICIDAL IDEATION [None]
  - VISUAL IMPAIRMENT [None]
